FAERS Safety Report 9926378 (Version 1)
Quarter: 2014Q1

REPORT INFORMATION
  Report Type: Spontaneous
  Country: US (occurrence: US)
  Receive Date: 20140226
  Receipt Date: 20140226
  Transmission Date: 20141002
  Serious: No
  Sender: FDA-Public Use
  Company Number: US-AMGEN-USASP2013068161

PATIENT
  Age: 60 Year
  Sex: Female

DRUGS (1)
  1. ENBREL [Suspect]
     Indication: RHEUMATOID ARTHRITIS
     Dosage: 50 MG, 2 TIMES/WK
     Route: 065
     Dates: start: 20120921

REACTIONS (8)
  - Diarrhoea [Not Recovered/Not Resolved]
  - Arthralgia [Recovered/Resolved]
  - Pain in extremity [Recovered/Resolved]
  - Joint stiffness [Recovered/Resolved]
  - Local swelling [Recovered/Resolved]
  - Musculoskeletal pain [Recovered/Resolved]
  - Joint swelling [Recovered/Resolved]
  - Musculoskeletal stiffness [Recovered/Resolved]
